FAERS Safety Report 11968915 (Version 1)
Quarter: 2016Q1

REPORT INFORMATION
  Report Type: Report from Study
  Country: IT (occurrence: IT)
  Receive Date: 20160128
  Receipt Date: 20160128
  Transmission Date: 20160526
  Serious: Yes (Other)
  Sender: FDA-Public Use
  Company Number: IT-ACCORD-037274

PATIENT
  Age: 61 Year
  Sex: Male

DRUGS (2)
  1. GEMCITABINE/GEMCITABINE HYDROCHLORIDE [Suspect]
     Active Substance: GEMCITABINE\GEMCITABINE HYDROCHLORIDE
     Indication: PANCREATIC CARCINOMA METASTATIC
     Dosage: RECEIVED 125 MG/M2 ON DAY 1, DAY 8 AND DAY 15
     Dates: start: 201408, end: 201507
  2. ABRAXANE [Suspect]
     Active Substance: PACLITAXEL
     Indication: PANCREATIC CARCINOMA METASTATIC
     Dosage: RECEIVED CYCLICAL 125 MG/M2 ON DAY 1, DAY 8 AND DAY 15
     Route: 042
     Dates: start: 20140801, end: 20150701

REACTIONS (2)
  - Disease progression [Unknown]
  - Pancreatic carcinoma metastatic [None]
